FAERS Safety Report 16874454 (Version 1)
Quarter: 2019Q4

REPORT INFORMATION
  Report Type: Report from Study
  Country: US (occurrence: US)
  Receive Date: 20191001
  Receipt Date: 20191001
  Transmission Date: 20200122
  Serious: Yes (Hospitalization)
  Sender: FDA-Public Use
  Company Number: US-BAUSCH-BL-2019-055630

PATIENT
  Age: 66 Year
  Sex: Female

DRUGS (2)
  1. OXSORALEN-ULTRA [Suspect]
     Active Substance: METHOXSALEN
     Indication: PRODUCT USE IN UNAPPROVED INDICATION
     Route: 048
     Dates: start: 201908, end: 201909
  2. OXSORALEN-ULTRA [Suspect]
     Active Substance: METHOXSALEN
     Indication: SKIN CANCER
     Route: 048
     Dates: start: 201811, end: 201903

REACTIONS (4)
  - Product dose omission [Unknown]
  - Product use in unapproved indication [Unknown]
  - Thrombosis [Not Recovered/Not Resolved]
  - Gastric infection [Not Recovered/Not Resolved]

NARRATIVE: CASE EVENT DATE: 201811
